FAERS Safety Report 5945238-7 (Version None)
Quarter: 2008Q4

REPORT INFORMATION
  Report Type: 
  Country: None (occurrence: None)
  Receive Date: 20081107
  Receipt Date: 20081028
  Transmission Date: 20090506
  Serious: Yes (Other)
  Sender: FDA-Public Use
  Company Number: TR-BAXTER-2008BH011675

PATIENT
  Age: 34 Year
  Sex: Female

DRUGS (4)
  1. DEXTROSE 5% [Suspect]
     Indication: MEDICATION DILUTION
     Route: 042
     Dates: start: 20081002, end: 20081020
  2. OXYTOCIN [Suspect]
     Route: 042
     Dates: start: 20080101, end: 20080101
  3. MISOPROSTOL [Suspect]
     Dates: start: 20080101, end: 20080101
  4. METILERGOBASIN [Suspect]
     Route: 030
     Dates: start: 20080101, end: 20080101

REACTIONS (1)
  - HYPOTONIA [None]
